FAERS Safety Report 23789957 (Version 1)
Quarter: 2024Q2

REPORT INFORMATION
  Report Type: Spontaneous
  Country: US (occurrence: US)
  Receive Date: 20240426
  Receipt Date: 20240426
  Transmission Date: 20240717
  Serious: Yes (Other)
  Sender: FDA-Public Use
  Company Number: US-GE HEALTHCARE-2024CSU004081

PATIENT
  Age: 50 Year
  Sex: Female

DRUGS (1)
  1. DATSCAN [Suspect]
     Active Substance: IODINE\IOFLUPANE I-123
     Indication: Single photon emission computerised tomogram
     Dosage: 175.38 MBQ, TOTAL
     Route: 065
     Dates: start: 20240417, end: 20240417

REACTIONS (2)
  - Swelling [Recovered/Resolved]
  - Rash [Recovered/Resolved]

NARRATIVE: CASE EVENT DATE: 20240417
